FAERS Safety Report 8135607-1 (Version None)
Quarter: 2012Q1

REPORT INFORMATION
  Report Type: 
  Country: None (occurrence: None)
  Receive Date: 20120214
  Receipt Date: 20120207
  Transmission Date: 20120608
  Serious: Yes (Other)
  Sender: FDA-Public Use
  Company Number: PHEH2012US003370

PATIENT
  Sex: Female

DRUGS (1)
  1. GLEEVEC [Suspect]
     Indication: CHRONIC MYELOID LEUKAEMIA
     Dosage: 400 MG, DAILY
     Route: 048

REACTIONS (9)
  - MENISCUS LESION [None]
  - OEDEMA PERIPHERAL [None]
  - FALL [None]
  - LIMB INJURY [None]
  - VOMITING [None]
  - FOOT FRACTURE [None]
  - HERPES ZOSTER [None]
  - NAUSEA [None]
  - ARTHRALGIA [None]
